FAERS Safety Report 8861283 (Version 2)
Quarter: 2012Q4

REPORT INFORMATION
  Report Type: 
  Country: CA (occurrence: CA)
  Receive Date: 20121026
  Receipt Date: 20121104
  Transmission Date: 20130627
  Serious: Yes (Other)
  Sender: FDA-Public Use
  Company Number: CA-AMGEN-CANSP2012067184

PATIENT
  Age: 60 Year
  Sex: Female

DRUGS (1)
  1. PROLIA [Suspect]
     Indication: OSTEOPOROSIS POSTMENOPAUSAL

REACTIONS (15)
  - Abasia [Recovered/Resolved]
  - Walking aid user [Unknown]
  - Activities of daily living impaired [Unknown]
  - Arthralgia [Recovering/Resolving]
  - Back pain [Recovering/Resolving]
  - Dizziness [Recovered/Resolved]
  - Musculoskeletal discomfort [Recovered/Resolved]
  - Toothache [Recovered/Resolved]
  - Pruritus generalised [Recovered/Resolved]
  - Asthenia [Unknown]
  - Fatigue [Unknown]
  - Feeling hot [Unknown]
  - Hyperhidrosis [Unknown]
  - Cough [Unknown]
  - Pain in extremity [Recovered/Resolved]
